FAERS Safety Report 16412486 (Version 2)
Quarter: 2019Q3

REPORT INFORMATION
  Report Type: Spontaneous
  Country: CA (occurrence: CA)
  Receive Date: 20190610
  Receipt Date: 20190709
  Transmission Date: 20191004
  Serious: Yes (Other)
  Sender: FDA-Public Use
  Company Number: CA-BAXTER-2019BAX011506

PATIENT

DRUGS (1)
  1. 3200 MCG/ML  DOPAMINE HYDROCHLORIDE AND 5% DEXTROSE INJECTION [Suspect]
     Active Substance: DOPAMINE HYDROCHLORIDE
     Indication: PRODUCT USED FOR UNKNOWN INDICATION
     Dosage: READY TO USE 250 ML BAG (800 MG/250 ML)
     Route: 065

REACTIONS (3)
  - Incorrect dose administered [Unknown]
  - Cardiac disorder [Unknown]
  - Blood pressure increased [Unknown]
